FAERS Safety Report 24942890 (Version 1)
Quarter: 2025Q1

REPORT INFORMATION
  Report Type: Report from Study
  Country: GB (occurrence: GB)
  Receive Date: 20250207
  Receipt Date: 20250207
  Transmission Date: 20250408
  Serious: Yes (Other)
  Sender: TAKEDA
  Company Number: GB-TAKEDA-2021TUS071337

PATIENT
  Sex: Male

DRUGS (3)
  1. HUMAN IMMUNOGLOBULIN G\HYALURONIDASE RECOMBINANT HUMAN [Suspect]
     Active Substance: HUMAN IMMUNOGLOBULIN G\HYALURONIDASE (HUMAN RECOMBINANT)
     Indication: Secondary immunodeficiency
  2. HUMAN IMMUNOGLOBULIN G\HYALURONIDASE RECOMBINANT HUMAN [Suspect]
     Active Substance: HUMAN IMMUNOGLOBULIN G\HYALURONIDASE (HUMAN RECOMBINANT)
     Indication: Chronic inflammatory demyelinating polyradiculoneuropathy
  3. HUMAN IMMUNOGLOBULIN G\HYALURONIDASE RECOMBINANT HUMAN [Suspect]
     Active Substance: HUMAN IMMUNOGLOBULIN G\HYALURONIDASE (HUMAN RECOMBINANT)

REACTIONS (13)
  - Nephrolithiasis [Unknown]
  - Infusion site injury [Unknown]
  - Emotional distress [Unknown]
  - Body temperature abnormal [Recovered/Resolved]
  - Urinary tract infection [Unknown]
  - Infusion related reaction [Unknown]
  - Device occlusion [Unknown]
  - Discomfort [Unknown]
  - Cough [Recovered/Resolved]
  - Tachycardia [Unknown]
  - Infusion site discolouration [Unknown]
  - Infusion site swelling [Unknown]
  - Infusion site erythema [Unknown]
